FAERS Safety Report 17882389 (Version 5)
Quarter: 2020Q3

REPORT INFORMATION
  Report Type: Spontaneous
  Country: IT (occurrence: IT)
  Receive Date: 20200610
  Receipt Date: 20200722
  Transmission Date: 20201103
  Serious: Yes (Other)
  Sender: FDA-Public Use
  Company Number: NVSC2020IT160353

PATIENT
  Age: 29 Year
  Sex: Female

DRUGS (20)
  1. MYCOPHENOLATE MOFETIL. [Suspect]
     Active Substance: MYCOPHENOLATE MOFETIL
     Indication: IMMUNE THROMBOCYTOPENIA
     Dosage: 1 G, QD
     Route: 065
  2. PREDNISONE. [Suspect]
     Active Substance: PREDNISONE
     Indication: IMMUNE THROMBOCYTOPENIA
     Dosage: UNK
     Route: 065
     Dates: start: 201611
  3. ROMIPLOSTIM [Suspect]
     Active Substance: ROMIPLOSTIM
     Indication: IMMUNE THROMBOCYTOPENIA
     Dosage: (1 UG UP TO 3.5 MCG/KG)
     Route: 065
  4. PREDNISONE. [Suspect]
     Active Substance: PREDNISONE
     Dosage: 1 MG/KG, QD
     Route: 065
     Dates: start: 201703
  5. ELTROMBOPAG [Suspect]
     Active Substance: ELTROMBOPAG
     Indication: IMMUNE THROMBOCYTOPENIA
     Dosage: UNK
     Route: 065
     Dates: start: 201611
  6. ELTROMBOPAG [Suspect]
     Active Substance: ELTROMBOPAG
     Dosage: 50 MG, QD
     Route: 065
     Dates: start: 201709, end: 201712
  7. CYCLOPHOSPHAMIDE. [Suspect]
     Active Substance: CYCLOPHOSPHAMIDE
     Indication: IMMUNE THROMBOCYTOPENIA
     Dosage: 700 MG/M2
     Route: 065
     Dates: start: 2017
  8. ROMIPLOSTIM [Suspect]
     Active Substance: ROMIPLOSTIM
     Dosage: 1 UG/KG, QW (ADMINISTERED DURING PREGNANCY)
     Route: 065
  9. LEDIPASVIR [Concomitant]
     Active Substance: LEDIPASVIR
     Indication: HEPATITIS C
     Dosage: UNK
     Route: 065
  10. CYCLOSPORIN A [Concomitant]
     Active Substance: CYCLOSPORINE
     Indication: PRODUCT USED FOR UNKNOWN INDICATION
     Dosage: 50 MGX2 UP TO 100 MGX2 DAILY
     Route: 065
  11. ROMIPLOSTIM [Suspect]
     Active Substance: ROMIPLOSTIM
     Dosage: 1 MCG/KG, INCREASING THE DOSAGE TO 10 MCG/KG
     Route: 065
  12. VINCRISTINE [Suspect]
     Active Substance: VINCRISTINE
     Indication: IMMUNE THROMBOCYTOPENIA
     Dosage: 2.37 MG, TIW
     Route: 065
  13. SOFOSBUVIR [Concomitant]
     Active Substance: SOFOSBUVIR
     Indication: HEPATITIS C
     Dosage: UNK
     Route: 065
  14. PREDNISONE. [Suspect]
     Active Substance: PREDNISONE
     Dosage: 68 MG, TIW (ADMINISTERED WITH CVP CHEMOTHERAPY)
     Route: 065
  15. ELTROMBOPAG [Suspect]
     Active Substance: ELTROMBOPAG
     Dosage: UNK
     Route: 065
     Dates: start: 201703
  16. MYCOPHENOLATE MOFETIL. [Suspect]
     Active Substance: MYCOPHENOLATE MOFETIL
     Dosage: 3 G, QD
     Route: 065
  17. DEXAMETHASONE. [Suspect]
     Active Substance: DEXAMETHASONE
     Indication: IMMUNE THROMBOCYTOPENIA
     Dosage: 40 MG/KG (FOUR COURSES), ADMINISTERED DURING PREGNANCY
     Route: 065
     Dates: start: 2017
  18. CYCLOPHOSPHAMIDE. [Suspect]
     Active Substance: CYCLOPHOSPHAMIDE
     Dosage: 1267.5 MG, TIW
     Route: 065
  19. ROMIPLOSTIM [Suspect]
     Active Substance: ROMIPLOSTIM
     Dosage: 10 UG/KG, QW (ADMINISTERED DURING PREGNANCY)
     Route: 065
  20. ROMIPLOSTIM [Suspect]
     Active Substance: ROMIPLOSTIM
     Dosage: ADMINISTERED DURING PREGNANCY
     Route: 065

REACTIONS (9)
  - Maternal exposure during pregnancy [Unknown]
  - Treatment failure [Unknown]
  - Petechiae [Unknown]
  - Normal newborn [Unknown]
  - Gingival bleeding [Unknown]
  - Epistaxis [Unknown]
  - Thrombocytosis [Unknown]
  - Off label use [Unknown]
  - Premature delivery [Unknown]
